FAERS Safety Report 4717220-9 (Version None)
Quarter: 2005Q3

REPORT INFORMATION
  Report Type: 
  Country: None (occurrence: None)
  Receive Date: 20050715
  Receipt Date: 20050706
  Transmission Date: 20060218
  Serious: Yes (Other)
  Sender: FDA-Public Use
  Company Number: 2005-06-0107

PATIENT
  Age: 77 Year
  Sex: Female
  Weight: 65 kg

DRUGS (6)
  1. CELESTENE (BETAMETASONE) TABLETS ^LIKE CELESTONE SYRUP^ [Suspect]
     Indication: LARYNGITIS
     Dosage: 2 MG QD ORAL
     Route: 048
     Dates: start: 20050530, end: 20050601
  2. AMOXICILLIN [Concomitant]
  3. CARBOCISTEINE [Concomitant]
  4. BAMBUTEROL [Concomitant]
  5. CEFIXIME [Concomitant]
  6. ENALAPRIL MALEATE [Concomitant]

REACTIONS (1)
  - ERYTHEMA [None]
